FAERS Safety Report 8472102-4 (Version None)
Quarter: 2012Q2

REPORT INFORMATION
  Report Type: 
  Country: None (occurrence: None)
  Receive Date: 20120627
  Receipt Date: 20120626
  Transmission Date: 20120825
  Serious: No
  Sender: FDA-Public Use
  Company Number: US-BAYER-2012-063250

PATIENT
  Age: 61 Year
  Sex: Male

DRUGS (1)
  1. STAXYN [Suspect]
     Indication: ERECTILE DYSFUNCTION
     Dosage: 10 MG ONE TIME
     Route: 048
     Dates: start: 20120623

REACTIONS (3)
  - HEADACHE [None]
  - NASAL CONGESTION [None]
  - INSOMNIA [None]
